FAERS Safety Report 19498449 (Version 3)
Quarter: 2023Q4

REPORT INFORMATION
  Report Type: Spontaneous
  Country: IT (occurrence: IT)
  Receive Date: 20210706
  Receipt Date: 20231026
  Transmission Date: 20240110
  Serious: Yes (Other)
  Sender: FDA-Public Use
  Company Number: IT-ROCHE-2837367

PATIENT
  Age: 66 Year
  Sex: Female
  Weight: 58 kg

DRUGS (3)
  1. TRASTUZUMAB [Suspect]
     Active Substance: TRASTUZUMAB
     Indication: Breast cancer
     Dosage: LAST DOSE BEFORE SAE WAS RECEIVED ON 30/APR/2021, NUMBER OF COURSES 9
     Route: 042
     Dates: start: 20201015
  2. PERTUZUMAB [Suspect]
     Active Substance: PERTUZUMAB
     Indication: Breast cancer
     Dosage: LAST DOSE BEFORE SAE WAS RECEIVED ON 30/APR/2021, NUMBER OF COURSES 9
     Route: 042
     Dates: start: 20201015
  3. ATEZOLIZUMAB [Concomitant]
     Active Substance: ATEZOLIZUMAB
     Indication: Breast cancer
     Dosage: LAST DOSE OF ATEZOLIZUMAB BEFORE SAE WAS RECEIVED ON 30APR2021, NUMBER OF COURSES 12
     Route: 042
     Dates: start: 20200812

REACTIONS (1)
  - Ejection fraction decreased [Recovered/Resolved]

NARRATIVE: CASE EVENT DATE: 20210504
